FAERS Safety Report 7775609-8 (Version None)
Quarter: 2011Q3

REPORT INFORMATION
  Report Type: 
  Country: None (occurrence: None)
  Receive Date: 20110921
  Receipt Date: 20110909
  Transmission Date: 20111222
  Serious: Yes (Other)
  Sender: FDA-Public Use
  Company Number: B0748285A

PATIENT
  Age: 16 Year
  Sex: Male

DRUGS (8)
  1. TENOFOVIR DISOPROXIL FUMARATE [Suspect]
     Indication: ANTIRETROVIRAL THERAPY
  2. LAMIVUDINE [Suspect]
     Indication: ANTIRETROVIRAL THERAPY
  3. ZIDOVUDINE [Suspect]
     Indication: ANTIRETROVIRAL THERAPY
  4. RITONAVIR [Suspect]
     Indication: ANTIRETROVIRAL THERAPY
  5. STAVUDINE [Suspect]
     Indication: ANTIRETROVIRAL THERAPY
  6. ABACAVIR SULFATE [Suspect]
     Indication: ANTIRETROVIRAL THERAPY
  7. LOPINAVIR (FORMULATION UNKNOWN) (LOPINAVIR) [Suspect]
     Indication: ANTIRETROVIRAL THERAPY
  8. DIDANOSINE [Suspect]
     Indication: ANTIRETROVIRAL THERAPY

REACTIONS (4)
  - TYPE 2 DIABETES MELLITUS [None]
  - LIPODYSTROPHY ACQUIRED [None]
  - BLOOD CHOLESTEROL INCREASED [None]
  - BLOOD TRIGLYCERIDES INCREASED [None]
